FAERS Safety Report 4679763-6 (Version None)
Quarter: 2005Q2

REPORT INFORMATION
  Report Type: 
  Country: None (occurrence: None)
  Receive Date: 20050531
  Receipt Date: 20050518
  Transmission Date: 20051028
  Serious: Yes (Hospitalization)
  Sender: FDA-Public Use
  Company Number: 702362

PATIENT
  Age: 47 Year
  Sex: Female
  Weight: 150 kg

DRUGS (4)
  1. AMEVIVE,  BLINDED [Suspect]
     Indication: PSORIATIC ARTHROPATHY
     Dosage: 15 MG; QW; IM
     Route: 030
     Dates: start: 20040317, end: 20040512
  2. METHOTREXATE [Concomitant]
  3. DICLOFENAC [Concomitant]
  4. ENALAPRIL MALEATE [Concomitant]

REACTIONS (6)
  - ALANINE AMINOTRANSFERASE INCREASED [None]
  - ASPARTATE AMINOTRANSFERASE INCREASED [None]
  - CD4 LYMPHOCYTES DECREASED [None]
  - CELLULITIS [None]
  - IMMUNOSUPPRESSION [None]
  - PYREXIA [None]
